FAERS Safety Report 10600884 (Version 1)
Quarter: 2014Q4

REPORT INFORMATION
  Report Type: Spontaneous
  Country: CA (occurrence: CA)
  Receive Date: 20141124
  Receipt Date: 20141124
  Transmission Date: 20150529
  Serious: Yes (Hospitalization)
  Sender: FDA-Public Use
  Company Number: CA-ROCHE-1494950

PATIENT
  Age: 54 Year
  Sex: Female

DRUGS (3)
  1. INCIVEK [Suspect]
     Active Substance: TELAPREVIR
     Indication: PRODUCT USED FOR UNKNOWN INDICATION
     Route: 065
  2. PEGINTERFERON ALFA-2B/RIBAVIRIN [Suspect]
     Active Substance: PEGINTERFERON ALFA-2B\RIBAVIRIN
     Indication: PRODUCT USED FOR UNKNOWN INDICATION
     Route: 065
  3. PEGASYS [Suspect]
     Active Substance: PEGINTERFERON ALFA-2A
     Indication: PRODUCT USED FOR UNKNOWN INDICATION
     Route: 058

REACTIONS (2)
  - Anaemia [Recovering/Resolving]
  - Oesophageal varices haemorrhage [Recovering/Resolving]
